FAERS Safety Report 4717888-7 (Version None)
Quarter: 2005Q3

REPORT INFORMATION
  Report Type: 
  Country: None (occurrence: None)
  Receive Date: 20050720
  Receipt Date: 20050712
  Transmission Date: 20060218
  Serious: Yes (Hospitalization)
  Sender: FDA-Public Use
  Company Number: US-BOEHRINGER INGELHEIM PHARMACEUTICALS, INC.-2005-BP-11704BP

PATIENT
  Sex: Female

DRUGS (4)
  1. MOBIC [Suspect]
     Indication: ARTHRALGIA
     Route: 048
     Dates: start: 20050301, end: 20050628
  2. MOBIC [Suspect]
     Indication: PAIN IN EXTREMITY
     Dates: start: 20050628, end: 20050702
  3. KLONOPIN [Concomitant]
     Route: 048
  4. SINGULAIR [Concomitant]
     Route: 048

REACTIONS (1)
  - THROMBOSIS [None]
